FAERS Safety Report 17591364 (Version 1)
Quarter: 2020Q1

REPORT INFORMATION
  Report Type: Spontaneous
  Country: AT (occurrence: AT)
  Receive Date: 20200327
  Receipt Date: 20200327
  Transmission Date: 20200409
  Serious: Yes (Other)
  Sender: FDA-Public Use
  Company Number: AT-ACCORD-177275

PATIENT
  Sex: Female

DRUGS (1)
  1. METHOTREXATE. [Suspect]
     Active Substance: METHOTREXATE
     Indication: OCULAR LYMPHOMA
     Dosage: MONTHLY INTRAVITREAL MTX INJECTIONS (0.4MG MTX IN 0.1 ML)
     Route: 031

REACTIONS (2)
  - Off label use [Unknown]
  - Keratopathy [Unknown]
